FAERS Safety Report 4355690-9 (Version None)
Quarter: 2004Q2

REPORT INFORMATION
  Report Type: 
  Country: None (occurrence: None)
  Receive Date: 20040505
  Receipt Date: 20040427
  Transmission Date: 20050107
  Serious: Yes (Other)
  Sender: FDA-Public Use
  Company Number: K200400657

PATIENT
  Sex: 0

DRUGS (1)
  1. ALTACE [Suspect]

REACTIONS (3)
  - MUSCLE ATROPHY [None]
  - MYALGIA [None]
  - MYOSITIS [None]
